FAERS Safety Report 15384631 (Version 2)
Quarter: 2018Q3

REPORT INFORMATION
  Report Type: Report from Study
  Country: None (occurrence: SE)
  Receive Date: 20180914
  Receipt Date: 20180918
  Transmission Date: 20181010
  Serious: Yes (Death, Hospitalization, Other)
  Sender: FDA-Public Use
  Company Number: SE-ABBVIE-18S-150-2476476-00

PATIENT
  Age: 72 Year
  Sex: Male

DRUGS (1)
  1. DUODOPA [Suspect]
     Active Substance: CARBIDOPA\LEVODOPA
     Indication: PARKINSON^S DISEASE
     Route: 050
     Dates: start: 20180315

REACTIONS (6)
  - Fall [Not Recovered/Not Resolved]
  - Drug dose omission [Unknown]
  - Device use issue [Unknown]
  - Unresponsive to stimuli [Not Recovered/Not Resolved]
  - Death [Fatal]
  - Femur fracture [Not Recovered/Not Resolved]

NARRATIVE: CASE EVENT DATE: 2018
